FAERS Safety Report 5557806-5 (Version None)
Quarter: 2007Q4

REPORT INFORMATION
  Report Type: 
  Country: None (occurrence: None)
  Receive Date: 20071130
  Receipt Date: 20070827
  Transmission Date: 20080405
  Serious: No
  Sender: FDA-Public Use
  Company Number: US200708006347

PATIENT
  Age: 68 Year
  Sex: Male

DRUGS (4)
  1. BYETTA [Suspect]
     Indication: TYPE 2 DIABETES MELLITUS
     Dosage: 5 UG, 2/D, SUBCUTANEOUS;  10 UG, 2/D, SUBCUTANEOUS;   5 UG, 2/D, SUBCUTANEOUS
     Route: 058
     Dates: start: 20050101, end: 20050101
  2. BYETTA [Suspect]
     Indication: TYPE 2 DIABETES MELLITUS
     Dosage: 5 UG, 2/D, SUBCUTANEOUS;  10 UG, 2/D, SUBCUTANEOUS;   5 UG, 2/D, SUBCUTANEOUS
     Route: 058
     Dates: start: 20050101, end: 20050101
  3. BYETTA [Suspect]
     Indication: TYPE 2 DIABETES MELLITUS
     Dosage: 5 UG, 2/D, SUBCUTANEOUS;  10 UG, 2/D, SUBCUTANEOUS;   5 UG, 2/D, SUBCUTANEOUS
     Route: 058
     Dates: start: 20050101
  4. GLUCOPHAGE (MTFORMIN) [Concomitant]

REACTIONS (1)
  - BLOOD GLUCOSE INCREASED [None]
